FAERS Safety Report 4731402-1 (Version None)
Quarter: 2005Q3

REPORT INFORMATION
  Report Type: 
  Country: None (occurrence: None)
  Receive Date: 20050802
  Receipt Date: 20050726
  Transmission Date: 20060218
  Serious: Yes (Hospitalization)
  Sender: FDA-Public Use
  Company Number: US-SANOFI-SYNTHELABO-A03200502271

PATIENT
  Sex: Male
  Weight: 68.03 kg

DRUGS (11)
  1. PLAVIX [Suspect]
     Indication: DRUG USE FOR UNKNOWN INDICATION
     Route: 048
     Dates: start: 20050401
  2. COUMADIN [Suspect]
     Indication: DRUG USE FOR UNKNOWN INDICATION
     Dosage: UNK
     Route: 048
     Dates: start: 19850101
  3. ATENOLOL [Concomitant]
     Dosage: UNK
     Route: 048
  4. ZOCOR [Concomitant]
     Dosage: UNK
     Route: 048
  5. ASPIRIN [Concomitant]
     Route: 048
     Dates: start: 20050401
  6. SYNTHROID [Concomitant]
     Dosage: UNK
     Route: 048
     Dates: start: 20000101
  7. ZETIA [Concomitant]
     Dosage: UNK
     Route: 048
     Dates: start: 20030101
  8. MULTI-VITAMIN [Concomitant]
     Dosage: UNK
     Route: 048
  9. ASCORBIC ACID [Concomitant]
     Dosage: UNK
     Route: 048
  10. COENZYME Q10 [Concomitant]
     Dosage: UNK
     Route: 048
  11. FLAXSEED OIL [Concomitant]
     Dosage: UNK
     Route: 048

REACTIONS (2)
  - INTERNATIONAL NORMALISED RATIO DECREASED [None]
  - INTESTINAL MASS [None]
